FAERS Safety Report 23163428 (Version 1)
Quarter: 2023Q4

REPORT INFORMATION
  Report Type: Spontaneous
  Country: US (occurrence: US)
  Receive Date: 20231109
  Receipt Date: 20231109
  Transmission Date: 20240109
  Serious: Yes (Hospitalization, Other)
  Sender: FDA-Public Use
  Company Number: US-HIKMA PHARMACEUTICALS USA INC.-US-H14001-23-66607

PATIENT
  Age: 67 Year
  Sex: Female

DRUGS (1)
  1. INFUMORPH [Suspect]
     Active Substance: MORPHINE SULFATE
     Indication: Spinal pain
     Dosage: 6.5 MILLIGRAM, QD
     Route: 037

REACTIONS (8)
  - Post-traumatic stress disorder [Unknown]
  - Abdominal discomfort [Unknown]
  - Burning sensation [Unknown]
  - Weight decreased [Unknown]
  - Anxiety [Unknown]
  - Insomnia [Unknown]
  - Drug ineffective [Unknown]
  - Product dose omission issue [Unknown]

NARRATIVE: CASE EVENT DATE: 20230222
